FAERS Safety Report 9115727 (Version 1)
Quarter: 2013Q1

REPORT INFORMATION
  Report Type: Spontaneous
  Country: US (occurrence: None)
  Receive Date: 20130221
  Receipt Date: 20130221
  Transmission Date: 20140127
  Serious: Yes (Other)
  Sender: FDA-Public Use
  Company Number: None

PATIENT
  Age: 56 Year
  Sex: Female
  Weight: 83.92 kg

DRUGS (1)
  1. HYDROXYZINE PAMOATE [Suspect]
     Route: 048
     Dates: start: 20121113, end: 20130130

REACTIONS (1)
  - Colitis [None]
